FAERS Safety Report 5139805-0 (Version None)
Quarter: 2006Q4

REPORT INFORMATION
  Report Type: 
  Country: None (occurrence: None)
  Receive Date: 20061025
  Receipt Date: 20060501
  Transmission Date: 20070319
  Serious: Yes (Death)
  Sender: FDA-Public Use
  Company Number: S06-USA-04321-01

PATIENT
  Age: 44 Year
  Sex: Male

DRUGS (4)
  1. LEXAPRO [Suspect]
     Indication: ANXIETY
     Dosage: 10 MG QD PO
     Route: 048
     Dates: start: 20040414, end: 20040429
  2. LEXAPRO [Suspect]
     Indication: DEPRESSED MOOD
     Dosage: 10 MG QD PO
     Route: 048
     Dates: start: 20040414, end: 20040429
  3. XANAX [Concomitant]
  4. WELLBUTRIN [Concomitant]

REACTIONS (7)
  - COMPLETED SUICIDE [None]
  - CRYING [None]
  - DIZZINESS [None]
  - EMOTIONAL DISORDER [None]
  - NEGATIVE THOUGHTS [None]
  - SLEEP DISORDER [None]
  - TOXICOLOGIC TEST ABNORMAL [None]
